FAERS Safety Report 4827294-2 (Version None)
Quarter: 2005Q4

REPORT INFORMATION
  Report Type: 
  Country: None (occurrence: None)
  Receive Date: 20051014
  Receipt Date: 20050722
  Transmission Date: 20060501
  Serious: No
  Sender: FDA-Public Use
  Company Number: 2005SP001014

PATIENT
  Age: 62 Year
  Sex: Female
  Weight: 84.369 kg

DRUGS (6)
  1. LUNESTA [Suspect]
     Indication: INSOMNIA
     Dosage: 4 MG;HS;ORAL
     Route: 048
     Dates: start: 20050501, end: 20050501
  2. LEXAPRO [Concomitant]
  3. WELLBUTRIN [Concomitant]
  4. EFFEXOR [Concomitant]
  5. PLAVIX [Concomitant]
  6. ASPIRIN [Concomitant]

REACTIONS (2)
  - HALLUCINATION [None]
  - MIDDLE INSOMNIA [None]
